FAERS Safety Report 19413530 (Version 1)
Quarter: 2021Q2

REPORT INFORMATION
  Report Type: Spontaneous
  Country: US (occurrence: US)
  Receive Date: 20210614
  Receipt Date: 20210614
  Transmission Date: 20210717
  Serious: No
  Sender: FDA-Public Use
  Company Number: NVSC2021US127760

PATIENT
  Sex: Male

DRUGS (1)
  1. TAFINLAR [Suspect]
     Active Substance: DABRAFENIB MESYLATE
     Indication: PRODUCT USED FOR UNKNOWN INDICATION
     Dosage: 1 DF
     Route: 065

REACTIONS (6)
  - Fatigue [Unknown]
  - Pyrexia [Unknown]
  - Gait disturbance [Unknown]
  - Hyperhidrosis [Unknown]
  - Tremor [Unknown]
  - Product use complaint [Unknown]
